FAERS Safety Report 9540026 (Version 1)
Quarter: 2013Q3

REPORT INFORMATION
  Report Type: Spontaneous
  Country: GB (occurrence: GB)
  Receive Date: 20130920
  Receipt Date: 20130920
  Transmission Date: 20140515
  Serious: Yes (Death, Other)
  Sender: FDA-Public Use
  Company Number: GB-WATSON-2013-16343

PATIENT
  Age: 34 Year
  Sex: Female
  Weight: 90 kg

DRUGS (23)
  1. FENTANYL CITRATE (WATSON LABORATORIES) [Suspect]
     Indication: SEDATION
  2. MIDAZOLAM (UNKNOWN) [Suspect]
     Indication: SEDATION
     Dosage: UNKNOWN DOSE, FREQUENCY-CONSTANT
     Route: 042
     Dates: start: 20130619
  3. VELCADE [Suspect]
     Indication: AMYLOIDOSIS
     Dosage: 2.6 MG, 1/WEEK
     Route: 058
     Dates: start: 20130614
  4. HUMAN ACTRAPID [Concomitant]
     Indication: BLOOD INSULIN
     Dosage: 2 IU, DAILY
     Route: 042
     Dates: start: 20130619, end: 20130621
  5. GLYCERINE [Concomitant]
     Indication: CONSTIPATION
     Dosage: UNKNOWN DOSE, AS NECESSARY
     Route: 054
     Dates: start: 20130610, end: 20130610
  6. FLEET READY TO USE ENEMA [Concomitant]
     Indication: CONSTIPATION
     Dosage: UNKNOWN DOSE, AS NECESSARY
     Route: 054
     Dates: start: 20130611, end: 20130611
  7. CO-AMOXICLAV [Concomitant]
     Indication: ANTIBIOTIC THERAPY
     Dosage: 1.2 G, FREQUENCY- STAT (IMMEDIATELY)
     Route: 042
     Dates: start: 20130611, end: 20130611
  8. ENOXAPARIN [Concomitant]
     Indication: THROMBOSIS PROPHYLAXIS
     Dosage: 40 MG, DAILY
     Route: 058
     Dates: start: 20130608, end: 20130609
  9. RAMIPRIL [Concomitant]
     Indication: HYPERTENSION
     Dosage: 2.5 MG, DAILY
     Route: 048
     Dates: start: 20130608, end: 20130611
  10. SPIRONOLACTONE [Concomitant]
     Indication: DIURETIC THERAPY
     Dosage: UNK
     Route: 065
  11. ONDANSETRON [Concomitant]
     Indication: NAUSEA
     Dosage: 8 MG, BID
     Route: 048
     Dates: start: 20130608, end: 20130614
  12. METOCLOPRAMIDE [Concomitant]
     Indication: NAUSEA
     Dosage: 10 MG, TID
     Route: 048
     Dates: start: 20130608, end: 20130621
  13. CARVEDILOL [Concomitant]
     Indication: HYPERTENSION
     Dosage: 3.125 MG, BID
     Route: 048
     Dates: start: 20130608, end: 20130610
  14. DEXAMETHASONE [Concomitant]
     Indication: AMYLOIDOSIS
     Dosage: 20 MG, DAILY
     Route: 048
     Dates: start: 20130609, end: 20130610
  15. LANSOPRAZOL [Concomitant]
     Indication: PRODUCT USED FOR UNKNOWN INDICATION
     Dosage: 30 MG, DAILY
     Route: 048
     Dates: start: 20130609, end: 20130621
  16. ALLOPURINOL [Concomitant]
     Indication: TUMOUR LYSIS SYNDROME
     Dosage: 300 MG, DAILY
     Route: 048
     Dates: start: 20130609, end: 20130621
  17. FUROSEMIDE [Concomitant]
     Indication: DIURETIC THERAPY
     Dosage: 80 MG, BID
     Route: 042
     Dates: start: 20130609, end: 20130609
  18. BISOPROLOL [Concomitant]
     Indication: HYPERTENSION
     Dosage: 2.5 MG, DAILY
     Route: 048
     Dates: start: 20130611, end: 20130615
  19. TINZAPARIN [Concomitant]
     Indication: THROMBOSIS PROPHYLAXIS
     Dosage: 4500 IU, DAILY
     Route: 058
     Dates: start: 20130610, end: 20130621
  20. SODIUM [Concomitant]
     Indication: CONSTIPATION
     Dosage: 200 MG, BID
     Route: 048
     Dates: start: 20130611, end: 20130621
  21. MOVICOL [Concomitant]
     Indication: CONSTIPATION
     Dosage: UNKNOWN DOSE, TWICE DAILY
     Route: 048
     Dates: start: 20130611, end: 20130621
  22. SENNA [Concomitant]
     Indication: CONSTIPATION
     Dosage: UNKNOWN DOSE, DAILY
     Route: 048
     Dates: start: 20130611, end: 20130621
  23. PARACETAMOL [Concomitant]
     Indication: PAIN
     Dosage: 1 G, AS NECESSARY
     Route: 048
     Dates: start: 20130612, end: 20130621

REACTIONS (4)
  - Cardiac arrest [Fatal]
  - Cardiac output decreased [Fatal]
  - Atrioventricular block complete [Unknown]
  - Bradycardia [Unknown]
